FAERS Safety Report 4412528-9 (Version None)
Quarter: 2004Q2

REPORT INFORMATION
  Report Type: 
  Country: None (occurrence: None)
  Receive Date: 20040630
  Receipt Date: 20040402
  Transmission Date: 20050107
  Serious: No
  Sender: FDA-Public Use
  Company Number: 04P-163-0256002-00

PATIENT
  Age: 75 Year
  Sex: Female
  Weight: 59.8748 kg

DRUGS (6)
  1. HUMIRA [Suspect]
     Indication: RHEUMATOID ARTHRITIS
     Dosage: 40 MG, 1 IN 2 WK, SUBCUTANEOUS
     Route: 058
     Dates: start: 20030501
  2. RALOXIFENE HCL [Concomitant]
  3. ALENDRONATE SODIUM [Concomitant]
  4. CALCIUM [Concomitant]
  5. TOCOPHEROL CONCENTRATE CAP [Concomitant]
  6. ACETAMINOPHEN [Concomitant]

REACTIONS (4)
  - ARTHRALGIA [None]
  - CARDIAC FLUTTER [None]
  - DRUG INEFFECTIVE [None]
  - PAIN IN EXTREMITY [None]
